FAERS Safety Report 24459059 (Version 1)
Quarter: 2024Q4

REPORT INFORMATION
  Report Type: Spontaneous
  Country: LT (occurrence: LT)
  Receive Date: 20241018
  Receipt Date: 20241018
  Transmission Date: 20250114
  Serious: No
  Sender: ROCHE
  Company Number: LT-ROCHE-3527651

PATIENT
  Age: 29 Year
  Sex: Female

DRUGS (16)
  1. RITUXIMAB [Suspect]
     Active Substance: RITUXIMAB
     Indication: Relapsing-remitting multiple sclerosis
     Dosage: IN JUN/2018
     Route: 041
  2. RITUXIMAB [Suspect]
     Active Substance: RITUXIMAB
     Dosage: A MONTH LATER OF FIRST DOSE
     Route: 041
  3. RITUXIMAB [Suspect]
     Active Substance: RITUXIMAB
     Dosage: IN MAR/2019
     Route: 041
  4. OCRELIZUMAB [Concomitant]
     Active Substance: OCRELIZUMAB
     Indication: Relapsing-remitting multiple sclerosis
     Route: 042
  5. OCRELIZUMAB [Concomitant]
     Active Substance: OCRELIZUMAB
     Route: 042
  6. METHYLPREDNISOLONE [Concomitant]
     Active Substance: METHYLPREDNISOLONE
     Dosage: FOR TWO CONSECUTIVE DAYS
     Route: 042
  7. METHYLPREDNISOLONE [Concomitant]
     Active Substance: METHYLPREDNISOLONE
     Dosage: FOR 3 CONSECUTIVE DAYS
     Route: 042
  8. METHYLPREDNISOLONE [Concomitant]
     Active Substance: METHYLPREDNISOLONE
     Route: 042
  9. METHYLPREDNISOLONE [Concomitant]
     Active Substance: METHYLPREDNISOLONE
     Route: 042
  10. PYRIDOSTIGMINE [Concomitant]
     Active Substance: PYRIDOSTIGMINE
     Dosage: TWO OR THREE TIMES PER DAY  (60 MG/8 H)
  11. INTERFERON BETA-1A [Concomitant]
     Active Substance: INTERFERON BETA-1A
     Dosage: 44 MCG THREE TIMES A WEEK
  12. DIMETHYL FUMARATE [Concomitant]
     Active Substance: DIMETHYL FUMARATE
  13. DIMETHYL FUMARATE [Concomitant]
     Active Substance: DIMETHYL FUMARATE
  14. CLEMASTINE [Concomitant]
     Active Substance: CLEMASTINE
  15. DALFAMPRIDINE [Concomitant]
     Active Substance: DALFAMPRIDINE
  16. BACLOFEN [Concomitant]
     Active Substance: BACLOFEN

REACTIONS (2)
  - Off label use [Unknown]
  - No adverse event [Unknown]
